FAERS Safety Report 21693845 (Version 2)
Quarter: 2022Q4

REPORT INFORMATION
  Report Type: Report from Study
  Country: US (occurrence: US)
  Receive Date: 20221207
  Receipt Date: 20221209
  Transmission Date: 20230113
  Serious: Yes (Hospitalization, Other)
  Sender: FDA-Public Use
  Company Number: US-EXELIXIS-CABO-22058595

PATIENT
  Sex: Female

DRUGS (9)
  1. CABOMETYX [Suspect]
     Active Substance: CABOZANTINIB S-MALATE
     Indication: Renal cancer
     Dosage: 20 MG, QD
     Route: 048
  2. LEVOTHYROXINE [Concomitant]
     Active Substance: LEVOTHYROXINE
  3. AMOXICILLIN\CLAVULANATE POTASSIUM [Concomitant]
     Active Substance: AMOXICILLIN\CLAVULANATE POTASSIUM
  4. PREDNISOLONE [Concomitant]
     Active Substance: PREDNISOLONE
  5. LORAZEPAM [Concomitant]
     Active Substance: LORAZEPAM
  6. MONTELUKAST SODIUM [Concomitant]
     Active Substance: MONTELUKAST SODIUM
  7. SULFAMETHOXAZOLE AND TRIMETHOPRIM [Concomitant]
     Active Substance: SULFAMETHOXAZOLE\TRIMETHOPRIM
  8. PREGABALIN [Concomitant]
     Active Substance: PREGABALIN
  9. NYSTATIN [Concomitant]
     Active Substance: NYSTATIN

REACTIONS (5)
  - Tracheal disorder [Unknown]
  - Blood sodium decreased [Unknown]
  - Blood pressure abnormal [Unknown]
  - Dyspnoea [Unknown]
  - Aphasia [Unknown]
